FAERS Safety Report 5065839-0 (Version None)
Quarter: 2006Q3

REPORT INFORMATION
  Report Type: 
  Country: None (occurrence: None)
  Receive Date: 20060731
  Receipt Date: 20060614
  Transmission Date: 20061208
  Serious: Yes (Hospitalization)
  Sender: FDA-Public Use
  Company Number: PHRM2006FR01850

PATIENT
  Sex: Female

DRUGS (3)
  1. GLEEVEC [Suspect]
     Indication: GASTROINTESTINAL STROMAL TUMOUR
     Dosage: UNK, UNK
     Route: 048
     Dates: start: 20060420
  2. GLEEVEC [Suspect]
     Route: 048
     Dates: start: 20060614
  3. PLAVIX [Suspect]

REACTIONS (2)
  - DRUG INTERACTION POTENTIATION [None]
  - HAEMATOMA [None]
